FAERS Safety Report 5338111-9 (Version None)
Quarter: 2007Q2

REPORT INFORMATION
  Report Type: 
  Country: None (occurrence: None)
  Receive Date: 20070530
  Receipt Date: 20070517
  Transmission Date: 20071010
  Serious: Yes (Disabling, Other)
  Sender: FDA-Public Use
  Company Number: PHEH2007US06006

PATIENT
  Age: 57 Year
  Sex: Female
  Weight: 48.707 kg

DRUGS (5)
  1. ZELNORM [Suspect]
     Indication: CONSTIPATION
     Dosage: 6 MG, BID
     Route: 048
     Dates: start: 20061004, end: 20061205
  2. ADDERALL 10 [Concomitant]
     Dosage: 10 MG, QD
     Route: 048
  3. TRAZODONE HCL [Concomitant]
     Dosage: 200 MG, QHS
     Route: 048
     Dates: start: 20061107
  4. LUNESTA [Concomitant]
     Dosage: 2 MG, QHS
     Route: 048
     Dates: start: 20061107
  5. THYROID TAB [Concomitant]
     Dosage: 87.5 MG, QD
     Route: 048
     Dates: start: 20061003

REACTIONS (9)
  - CARDIAC FLUTTER [None]
  - CARDIAC STRESS TEST [None]
  - CHEST PAIN [None]
  - CYTOMEGALOVIRUS INFECTION [None]
  - DYSPNOEA [None]
  - FATIGUE [None]
  - HYPOTENSION [None]
  - OEDEMA PERIPHERAL [None]
  - VENTRICULAR EXTRASYSTOLES [None]
